FAERS Safety Report 6504200-6 (Version None)
Quarter: 2009Q4

REPORT INFORMATION
  Report Type: 
  Country: None (occurrence: None)
  Receive Date: 20091217
  Receipt Date: 20091207
  Transmission Date: 20100525
  Serious: Yes (Other)
  Sender: FDA-Public Use
  Company Number: PHHY2009BR54478

PATIENT
  Age: 73 Year
  Sex: Female
  Weight: 64.2 kg

DRUGS (8)
  1. TEGRETOL-XR [Suspect]
     Indication: CONVULSION
     Dosage: 3 DF, UNK
     Route: 048
     Dates: start: 20030101
  2. TEGRETOL-XR [Suspect]
     Dosage: 2 DF, UNK
  3. RISPERIDONE [Concomitant]
     Indication: ANXIETY
     Dosage: 1 DF, BID
  4. LEXAPRO [Concomitant]
     Dosage: 1 TABLET IN THE LUNCH
     Dates: start: 20090801
  5. FLUIMUCIL [Concomitant]
     Indication: LUNG DISORDER
     Dosage: 1 DF, UNK
     Dates: start: 20091204
  6. FUROSEMIDE [Concomitant]
     Indication: RENAL DISORDER
     Dosage: 1 DF, PRN
  7. FORMOTEROL FUMARATE [Concomitant]
     Indication: LUNG DISORDER
     Dosage: 1 INHALATION IN THE AFTERNOON
  8. METFORMIN HCL [Concomitant]
     Indication: DIABETES MELLITUS
     Dosage: UNK

REACTIONS (2)
  - CEREBROVASCULAR ACCIDENT [None]
  - VISUAL FIELD DEFECT [None]
